FAERS Safety Report 16101422 (Version 1)
Quarter: 2019Q1

REPORT INFORMATION
  Report Type: Spontaneous
  Country: SI (occurrence: SI)
  Receive Date: 20190321
  Receipt Date: 20190321
  Transmission Date: 20190418
  Serious: Yes (Other)
  Sender: FDA-Public Use
  Company Number: SI-ACCORD-113728

PATIENT
  Age: 68 Year
  Sex: Male

DRUGS (6)
  1. PRENEWEL [Concomitant]
     Active Substance: INDAPAMIDE\PERINDOPRIL ERBUMINE
  2. OMNIC OCAS [Concomitant]
     Active Substance: TAMSULOSIN HYDROCHLORIDE
  3. FLUOROURACIL. [Suspect]
     Active Substance: FLUOROURACIL
     Indication: RECTAL CANCER
     Dosage: 50 MG/ML SOLUTION FOR INJECTION
     Route: 042
     Dates: start: 20180716, end: 20181022
  4. DEPAKINE [Concomitant]
     Active Substance: VALPROATE SODIUM
     Dosage: 500 MG, 2X1
  5. AGLURAB [Concomitant]
     Active Substance: METFORMIN HYDROCHLORIDE
  6. PRAZINE [Concomitant]
     Dosage: 100 MG + 150 MG

REACTIONS (1)
  - Thrombocytopenia [Recovered/Resolved]

NARRATIVE: CASE EVENT DATE: 20181008
